FAERS Safety Report 10253501 (Version 1)
Quarter: 2014Q2

REPORT INFORMATION
  Report Type: Other
  Country: JP (occurrence: JP)
  Receive Date: 20140623
  Receipt Date: 20140623
  Transmission Date: 20141212
  Serious: Yes (Other)
  Sender: FDA-Public Use
  Company Number: JP-BRISTOL-MYERS SQUIBB COMPANY-21058037

PATIENT
  Age: 50 Year
  Sex: Female
  Weight: 60 kg

DRUGS (5)
  1. METGLUCO [Suspect]
     Indication: DIABETES MELLITUS
     Route: 048
  2. MELBIN [Suspect]
     Indication: DIABETES MELLITUS
     Route: 048
  3. GLIMEPIRIDE [Concomitant]
     Indication: DIABETES MELLITUS
     Route: 048
  4. NOVORAPID [Concomitant]
     Indication: DIABETES MELLITUS
     Dosage: INSULIN ASPART(GENETICAL RECOMBINATION)
     Route: 058
  5. LEVEMIR [Concomitant]
     Indication: DIABETES MELLITUS
     Dosage: (INSULIN (DETEMIR (GENETICAL RECOMBINATION)
     Route: 058

REACTIONS (2)
  - Hypoglycaemia [Unknown]
  - Fall [Unknown]
